FAERS Safety Report 12725635 (Version 1)
Quarter: 2016Q3

REPORT INFORMATION
  Report Type: Spontaneous
  Country: US (occurrence: US)
  Receive Date: 20160906
  Receipt Date: 20160906
  Transmission Date: 20161109
  Serious: Yes (Other)
  Sender: FDA-Public Use
  Company Number: None

PATIENT
  Age: 62 Year
  Sex: Female
  Weight: 81 kg

DRUGS (3)
  1. TECFIDERA [Suspect]
     Active Substance: DIMETHYL FUMARATE
     Indication: MULTIPLE SCLEROSIS
     Route: 048
     Dates: start: 20160627
  2. GABAPENTIN. [Concomitant]
     Active Substance: GABAPENTIN
  3. VITAMIN D3 [Concomitant]
     Active Substance: CHOLECALCIFEROL

REACTIONS (10)
  - Swollen tongue [None]
  - Diarrhoea [None]
  - Abdominal pain [None]
  - Lip swelling [None]
  - Chromaturia [None]
  - Back pain [None]
  - Pharyngeal oedema [None]
  - Nausea [None]
  - Abdominal distension [None]
  - Rash [None]

NARRATIVE: CASE EVENT DATE: 20160825
